FAERS Safety Report 20091342 (Version 1)
Quarter: 2021Q4

REPORT INFORMATION
  Report Type: Spontaneous
  Country: HU (occurrence: HU)
  Receive Date: 20211119
  Receipt Date: 20211119
  Transmission Date: 20220303
  Serious: Yes (Other)
  Sender: FDA-Public Use
  Company Number: HU-Merck Healthcare KGaA-9281280

PATIENT
  Age: 78 Year
  Sex: Female

DRUGS (1)
  1. BAVENCIO [Suspect]
     Active Substance: AVELUMAB
     Indication: Neuroendocrine carcinoma of the skin
     Route: 042

REACTIONS (1)
  - Sjogren^s syndrome [Unknown]
